FAERS Safety Report 16669257 (Version 1)
Quarter: 2019Q3

REPORT INFORMATION
  Report Type: Spontaneous
  Country: US (occurrence: US)
  Receive Date: 20190805
  Receipt Date: 20190805
  Transmission Date: 20191004
  Serious: Yes (Congenital Anomaly)
  Sender: FDA-Public Use
  Company Number: None

PATIENT
  Age: 36 Year
  Sex: Female
  Weight: 54 kg

DRUGS (1)
  1. REMICADE [Suspect]
     Active Substance: INFLIXIMAB
     Indication: COLITIS ULCERATIVE
     Dates: start: 20170501, end: 20180517

REACTIONS (5)
  - Maternal exposure during pregnancy [None]
  - Abortion induced [None]
  - Foetal exposure during pregnancy [None]
  - Congenital aqueductal stenosis [None]
  - Malaise [None]

NARRATIVE: CASE EVENT DATE: 20180518
